FAERS Safety Report 10465051 (Version 1)
Quarter: 2014Q3

REPORT INFORMATION
  Report Type: Spontaneous
  Country: US (occurrence: US)
  Receive Date: 20140919
  Receipt Date: 20140919
  Transmission Date: 20150326
  Serious: Yes (Hospitalization, Other)
  Sender: FDA-Public Use
  Company Number: US-BAUSCH-BL-2014-004998

PATIENT
  Age: 8 Decade
  Sex: Male

DRUGS (1)
  1. ATIVAN [Suspect]
     Active Substance: LORAZEPAM
     Indication: ACCIDENTAL EXPOSURE TO PRODUCT

REACTIONS (2)
  - Lethargy [Unknown]
  - Accidental exposure to product [Unknown]
